FAERS Safety Report 6230212-6 (Version None)
Quarter: 2009Q2

REPORT INFORMATION
  Report Type: 
  Country: None (occurrence: None)
  Receive Date: 20090615
  Receipt Date: 20070308
  Transmission Date: 20091009
  Serious: Yes (Death)
  Sender: FDA-Public Use
  Company Number: JP-NOVOPROD-261076

PATIENT
  Sex: Male
  Weight: 63 kg

DRUGS (3)
  1. NOVOMIX 30 FLEXPEN [Suspect]
     Indication: INSULIN-REQUIRING TYPE 2 DIABETES MELLITUS
     Dosage: 4 IU, QD
     Route: 058
     Dates: start: 20061219
  2. MARUYAMA VACCINE A [Concomitant]
     Dosage: THE TWO VACCINES WERE ADMINSTERED ALTERNATELY EVERY OTHER DAY.
     Dates: start: 20061218, end: 20070218
  3. MARUYAMA VACCINE B [Concomitant]
     Dosage: THE TWO VACCINES WERE ADMINSTERED ALTERNATELY EVERY OTHER DAY.
     Dates: start: 20061218, end: 20070218

REACTIONS (1)
  - OESOPHAGEAL CARCINOMA [None]
